FAERS Safety Report 5594543-5 (Version None)
Quarter: 2008Q1

REPORT INFORMATION
  Report Type: 
  Country: None (occurrence: None)
  Receive Date: 20080109
  Receipt Date: 20080102
  Transmission Date: 20080703
  Serious: Yes (Other)
  Sender: FDA-Public Use
  Company Number: 200712622

PATIENT
  Age: 45 Year
  Sex: Female
  Weight: 105.4 kg

DRUGS (15)
  1. VIVAGLOBIN [Suspect]
     Indication: COMBINED IMMUNODEFICIENCY
     Dosage: 114 MG DAILY SC; 114 ML Q1W SC
     Route: 058
     Dates: start: 20071209
  2. PHYLOCONTIN [Concomitant]
  3. QVAR 40 [Concomitant]
  4. SEREVENT [Concomitant]
  5. CO-AMILOFRUSE [Concomitant]
  6. ATROVENT [Concomitant]
  7. ALBUTEROL [Concomitant]
  8. QUININE SULFATE [Concomitant]
  9. PREGABALIN [Concomitant]
  10. NEXIUM [Concomitant]
  11. RANITIDINE [Concomitant]
  12. CITALOPRAM [Concomitant]
  13. ALVERINE [Concomitant]
  14. DOMPERIDONE [Concomitant]
  15. NUVELLE [Concomitant]

REACTIONS (8)
  - CONTUSION [None]
  - ERYSIPELAS [None]
  - INJECTION SITE ERYTHEMA [None]
  - INJECTION SITE RASH [None]
  - INJECTION SITE SWELLING [None]
  - MIGRAINE [None]
  - RASH ERYTHEMATOUS [None]
  - SKIN REACTION [None]
